FAERS Safety Report 24401166 (Version 2)
Quarter: 2024Q4

REPORT INFORMATION
  Report Type: Report from Study
  Country: CA (occurrence: CA)
  Receive Date: 20241006
  Receipt Date: 20241023
  Transmission Date: 20250114
  Serious: No
  Sender: ABBVIE
  Company Number: CA-ABBVIE-5951489

PATIENT
  Age: 50 Year
  Sex: Male

DRUGS (1)
  1. SKYRIZI [Suspect]
     Active Substance: RISANKIZUMAB-RZAA
     Indication: Psoriasis
     Route: 058
     Dates: start: 20200118

REACTIONS (1)
  - Procedural pain [Unknown]

NARRATIVE: CASE EVENT DATE: 20240901
